FAERS Safety Report 11667797 (Version 3)
Quarter: 2015Q4

REPORT INFORMATION
  Report Type: Report from Study
  Country: US (occurrence: US)
  Receive Date: 20151027
  Receipt Date: 20151103
  Transmission Date: 20160304
  Serious: Yes (Hospitalization, Other)
  Sender: FDA-Public Use
  Company Number: US-BAYER-2015-452808

PATIENT
  Age: 64 Year
  Sex: Male
  Weight: 93 kg

DRUGS (2)
  1. RADIUM-223 DICHLORIDE [Suspect]
     Active Substance: RADIUM RA-223 DICHLORIDE
     Indication: METASTASES TO BONE
     Dosage: 50 KBQ /KG B.W. Q2WKS
     Route: 042
     Dates: start: 20150922, end: 20150922
  2. RADIUM-223 DICHLORIDE [Suspect]
     Active Substance: RADIUM RA-223 DICHLORIDE
     Indication: PROSTATE CANCER STAGE IV
     Dosage: 50 KBQ /KG B.W. Q2WKS
     Route: 042
     Dates: start: 20150825, end: 20150825

REACTIONS (6)
  - Prostate cancer metastatic [None]
  - Radiculopathy [Not Recovered/Not Resolved]
  - Fatigue [Not Recovered/Not Resolved]
  - Bone pain [Not Recovered/Not Resolved]
  - Fatigue [Not Recovered/Not Resolved]
  - Back pain [Not Recovered/Not Resolved]

NARRATIVE: CASE EVENT DATE: 20151023
